FAERS Safety Report 6565120-4 (Version None)
Quarter: 2010Q1

REPORT INFORMATION
  Report Type: 
  Country: None (occurrence: None)
  Receive Date: 20100201
  Receipt Date: 20100111
  Transmission Date: 20100710
  Serious: Yes (Other)
  Sender: FDA-Public Use
  Company Number: A0841946A

PATIENT
  Age: 53 Year
  Sex: Male

DRUGS (3)
  1. ZANAMIVIR [Suspect]
     Indication: H1N1 INFLUENZA
     Dosage: 400MG TWICE PER DAY
     Route: 042
     Dates: start: 20091203, end: 20091207
  2. ZANAMIVIR [Concomitant]
     Route: 055
     Dates: start: 20091207
  3. BIPAP [Concomitant]

REACTIONS (1)
  - ILEUS PARALYTIC [None]
